FAERS Safety Report 5929407-8 (Version None)
Quarter: 2008Q3

REPORT INFORMATION
  Report Type: 
  Country: None (occurrence: None)
  Receive Date: 20080923
  Receipt Date: 20080425
  Transmission Date: 20090109
  Serious: No
  Sender: FDA-Public Use
  Company Number: 20080115

PATIENT
  Age: 61 Year
  Sex: Female
  Weight: 69 kg

DRUGS (1)
  1. AMINOPHYLLIN [Suspect]
     Indication: DRUG THERAPY
     Dosage: 100 MG ONCE
     Dates: start: 20080416, end: 20080416

REACTIONS (1)
  - MUSCLE TWITCHING [None]
